FAERS Safety Report 9011580 (Version 2)
Quarter: 2013Q3

REPORT INFORMATION
  Report Type: Spontaneous
  Country: HR (occurrence: HR)
  Receive Date: 20130108
  Receipt Date: 20130930
  Transmission Date: 20140515
  Serious: Yes (Life-Threatening, Hospitalization, Other)
  Sender: FDA-Public Use
  Company Number: HR-009507513-1301HRV002234

PATIENT
  Age: 48 Year
  Sex: Male
  Weight: 90 kg

DRUGS (6)
  1. BRIDION [Suspect]
     Indication: NEUROMUSCULAR BLOCKADE REVERSAL
     Dosage: 180 MG, QD
     Route: 042
     Dates: start: 20121106, end: 20121106
  2. ATROPINE [Concomitant]
     Dosage: 1.8 MG, QD
     Route: 042
     Dates: start: 20121106, end: 20121106
  3. PROSTIGMIN TABLETS [Concomitant]
     Dosage: 3.6 MG, QD
     Dates: start: 20121106, end: 20121106
  4. AMLOPIN (AMLODIPINE BESYLATE) [Concomitant]
  5. TRITACE [Concomitant]
  6. PHYSIOTENS [Concomitant]

REACTIONS (5)
  - Oedema [Recovered/Resolved]
  - Anaphylactic reaction [Recovered/Resolved]
  - Urticaria [Recovered/Resolved]
  - Blood pressure decreased [Recovered/Resolved]
  - Heart rate increased [Recovered/Resolved]
